FAERS Safety Report 6238899-9 (Version None)
Quarter: 2009Q2

REPORT INFORMATION
  Report Type: 
  Country: None (occurrence: None)
  Receive Date: 20090622
  Receipt Date: 20090616
  Transmission Date: 20091009
  Serious: Yes (Life-Threatening, Hospitalization, Other)
  Sender: FDA-Public Use
  Company Number: FR-ASTRAZENECA-2009CG01259

PATIENT
  Age: 9035 Day
  Sex: Female

DRUGS (4)
  1. DIPRIVAN [Suspect]
     Indication: ANAESTHESIA
     Route: 042
     Dates: start: 20090504
  2. CELOCURIN [Suspect]
     Indication: ANAESTHESIA
     Route: 042
     Dates: start: 20090504
  3. TRACRIUM [Suspect]
     Indication: ANAESTHESIA
     Route: 042
     Dates: start: 20090504
  4. SUFENTANIL [Suspect]
     Indication: ANAESTHESIA
     Route: 042
     Dates: start: 20090504

REACTIONS (3)
  - BRONCHOSPASM PARADOXICAL [None]
  - HYPOTENSION [None]
  - RASH [None]
